FAERS Safety Report 9339553 (Version 1)
Quarter: 2013Q2

REPORT INFORMATION
  Report Type: Other
  Country: GB (occurrence: GB)
  Receive Date: 20130610
  Receipt Date: 20130610
  Transmission Date: 20140414
  Serious: Yes (Hospitalization)
  Sender: FDA-Public Use
  Company Number: GB-ACTAVIS-2013-10135

PATIENT
  Age: 71 Year
  Sex: Male

DRUGS (12)
  1. DEXAMETHASONE [Suspect]
     Indication: PROPHYLAXIS OF NAUSEA AND VOMITING
     Dosage: 4 MG, UNK
     Route: 048
     Dates: start: 20121003, end: 20121208
  2. OXALIPLATIN (UNKNOWN) [Suspect]
     Indication: PANCREATIC CARCINOMA
     Dosage: 180 MG, EVERY 2 WEEKS
     Route: 042
     Dates: start: 20121003, end: 20121205
  3. IRINOTECAN HYDROCHLORIDE (UNKNOWN) [Suspect]
     Indication: PANCREATIC CARCINOMA
     Dosage: 370 MG, UNK
     Route: 042
     Dates: start: 20121003, end: 20121205
  4. FLUOROURACIL [Suspect]
     Indication: PANCREATIC CARCINOMA
     Dosage: 800 MG, EVERY 2 WEEKS
     Route: 042
     Dates: start: 20121003, end: 20121207
  5. FLUOROURACIL [Suspect]
     Dosage: 4600 MG, EVERY 2 WEEKS
     Route: 042
     Dates: start: 20121003, end: 20121207
  6. FOLINIC ACID [Concomitant]
     Indication: PRODUCT USED FOR UNKNOWN INDICATION
     Dosage: UNK, UNKNOWN
     Route: 065
  7. DOMPERIDONE [Concomitant]
     Indication: PRODUCT USED FOR UNKNOWN INDICATION
     Dosage: UNK, UNKNOWN
     Route: 065
  8. GRANISETRON [Concomitant]
     Indication: PRODUCT USED FOR UNKNOWN INDICATION
     Dosage: UNK, UNKNOWN
     Route: 065
  9. CIPROFLOXACIN [Concomitant]
     Indication: PRODUCT USED FOR UNKNOWN INDICATION
     Dosage: UNK, UNKNOWN
     Route: 065
  10. CREON [Concomitant]
     Indication: PRODUCT USED FOR UNKNOWN INDICATION
  11. THYROXINE [Concomitant]
     Indication: PRODUCT USED FOR UNKNOWN INDICATION
     Dosage: UNK, UNKNOWN
     Route: 065
  12. AMLODIPINE [Concomitant]
     Indication: PRODUCT USED FOR UNKNOWN INDICATION
     Dosage: UNK, UNKNOWN
     Route: 065

REACTIONS (3)
  - Hypomania [Unknown]
  - Depressed mood [Unknown]
  - Malaise [Unknown]
